FAERS Safety Report 18026818 (Version 3)
Quarter: 2021Q2

REPORT INFORMATION
  Report Type: Spontaneous
  Country: None (occurrence: US)
  Receive Date: 20200716
  Receipt Date: 20210622
  Transmission Date: 20210717
  Serious: Yes (Other)
  Sender: FDA-Public Use
  Company Number: US-GLAXOSMITHKLINE-US2020132468

PATIENT
  Sex: Male

DRUGS (3)
  1. ZANTAC [Suspect]
     Active Substance: RANITIDINE HYDROCHLORIDE
     Dates: start: 19940615, end: 20190615
  2. ZANTAC [Suspect]
     Active Substance: RANITIDINE HYDROCHLORIDE
     Dosage: TO BE SUPPLEMENTED|PRESCRIPTION
     Route: 065
     Dates: start: 199401, end: 201901
  3. ZANTAC [Suspect]
     Active Substance: RANITIDINE HYDROCHLORIDE
     Dosage: TO BE SUPPLEMENTED|PRESCRIPTION
     Route: 065
     Dates: start: 199401, end: 201901

REACTIONS (2)
  - Prostate cancer [Unknown]
  - Prostatic disorder [Unknown]
